FAERS Safety Report 9532983 (Version 1)
Quarter: 2013Q2

REPORT INFORMATION
  Report Type: Spontaneous
  Country: US (occurrence: None)
  Receive Date: 20130418
  Receipt Date: 20130418
  Transmission Date: 20140414
  Serious: Yes (Other)
  Sender: FDA-Public Use
  Company Number: 2012PROUSA02363

PATIENT
  Age: 70 Year
  Sex: Male

DRUGS (1)
  1. PROVENGE [Suspect]
     Indication: PROSTATE CANCER
     Dosage: SINGLE
     Route: 042
     Dates: start: 20121207, end: 20121207

REACTIONS (6)
  - Blood pressure decreased [None]
  - Abdominal pain upper [None]
  - Unresponsive to stimuli [None]
  - Dizziness [None]
  - Nausea [None]
  - Chills [None]
